FAERS Safety Report 8814279 (Version 4)
Quarter: 2013Q1

REPORT INFORMATION
  Report Type: Spontaneous
  Country: US (occurrence: US)
  Receive Date: 20120928
  Receipt Date: 20130215
  Transmission Date: 20140127
  Serious: Yes (Disabling, Other)
  Sender: FDA-Public Use
  Company Number: US-JNJFOC-20120909617

PATIENT
  Age: 52 Year
  Sex: Female
  Weight: 77.11 kg

DRUGS (6)
  1. TOPAMAX [Suspect]
     Indication: PAIN
     Route: 048
     Dates: start: 200911, end: 20091107
  2. TOPAMAX [Suspect]
     Indication: NEURALGIA
     Route: 048
     Dates: start: 200911, end: 20091107
  3. HYDROCHLOROTHIAZIDE [Concomitant]
     Indication: BLOOD PRESSURE
     Route: 065
     Dates: start: 2007
  4. CYMBALTA [Concomitant]
     Indication: DEPRESSION
     Route: 065
     Dates: start: 20091028, end: 20091110
  5. ESTROGEN [Concomitant]
     Indication: PRODUCT USED FOR UNKNOWN INDICATION
     Route: 065
  6. UNKNOWN MEDICATION [Concomitant]
     Indication: PRODUCT USED FOR UNKNOWN INDICATION
     Route: 065

REACTIONS (10)
  - Angle closure glaucoma [Recovered/Resolved with Sequelae]
  - Cerebrovascular accident [Unknown]
  - Suicidal ideation [Unknown]
  - Visual impairment [Recovering/Resolving]
  - Cataract [Not Recovered/Not Resolved]
  - Urinary incontinence [Unknown]
  - Pain [Recovered/Resolved]
  - Periorbital contusion [Recovered/Resolved]
  - Hyperacusis [Recovered/Resolved]
  - Dysgeusia [Unknown]
